FAERS Safety Report 15553894 (Version 2)
Quarter: 2018Q4

REPORT INFORMATION
  Report Type: Spontaneous
  Country: CH (occurrence: CH)
  Receive Date: 20181026
  Receipt Date: 20181030
  Transmission Date: 20190205
  Serious: Yes (Other)
  Sender: FDA-Public Use
  Company Number: CH-BIOGEN-2018BI00649123

PATIENT
  Age: 19 Year
  Sex: Female
  Weight: 50 kg

DRUGS (1)
  1. SPINRAZA [Suspect]
     Active Substance: NUSINERSEN
     Indication: SPINAL MUSCULAR ATROPHY
     Route: 037
     Dates: start: 20180724

REACTIONS (4)
  - Fatigue [Recovered/Resolved]
  - Muscular weakness [Recovered/Resolved]
  - Back pain [Recovered/Resolved]
  - Spinal disorder [Recovered/Resolved]

NARRATIVE: CASE EVENT DATE: 20180822
